FAERS Safety Report 20249075 (Version 3)
Quarter: 2022Q1

REPORT INFORMATION
  Report Type: Report from Study
  Country: ES (occurrence: ES)
  Receive Date: 20211229
  Receipt Date: 20220114
  Transmission Date: 20220423
  Serious: Yes (Life-Threatening)
  Sender: FDA-Public Use
  Company Number: ES-CELGENE-ESP-20211208363

PATIENT
  Age: 69 Year
  Sex: Male

DRUGS (13)
  1. ENASIDENIB [Suspect]
     Active Substance: ENASIDENIB
     Indication: Acute myeloid leukaemia
     Route: 048
     Dates: start: 20211215, end: 20211224
  2. CYTARABINE [Suspect]
     Active Substance: CYTARABINE
     Indication: Acute myeloid leukaemia
     Route: 065
     Dates: start: 20211215, end: 20211220
  3. Dustaterick/tamsulosin hydroxchloride [Concomitant]
     Indication: Product used for unknown indication
     Dosage: 0.5/0.4 MG
     Route: 065
     Dates: start: 20211119
  4. FUROSEMIDE [Concomitant]
     Active Substance: FUROSEMIDE
     Indication: Product used for unknown indication
     Route: 065
     Dates: start: 20211111
  5. LOPERAMIDE HYDROCHLORIDE [Concomitant]
     Active Substance: LOPERAMIDE HYDROCHLORIDE
     Indication: Product used for unknown indication
     Route: 065
     Dates: start: 20211111
  6. HYDROCORTISONE [Concomitant]
     Active Substance: HYDROCORTISONE
     Indication: Product used for unknown indication
     Route: 065
     Dates: start: 20211223
  7. AMIKACIN [Concomitant]
     Active Substance: AMIKACIN
     Indication: Product used for unknown indication
     Route: 065
     Dates: start: 20211224
  8. MEROPENEM [Concomitant]
     Active Substance: MEROPENEM
     Indication: Product used for unknown indication
     Route: 065
     Dates: start: 20211224
  9. LEVETIRACETAM [Concomitant]
     Active Substance: LEVETIRACETAM
     Indication: Product used for unknown indication
     Route: 065
     Dates: start: 20211205
  10. OMEPRAZOLE [Concomitant]
     Active Substance: OMEPRAZOLE
     Indication: Product used for unknown indication
     Route: 065
  11. AMLODIPINE [Concomitant]
     Active Substance: AMLODIPINE BESYLATE
     Indication: Product used for unknown indication
     Route: 065
     Dates: start: 20211021
  12. MASTICAL D [Concomitant]
     Indication: Product used for unknown indication
     Route: 065
     Dates: start: 20211203
  13. ATORVASTATIN [Concomitant]
     Active Substance: ATORVASTATIN
     Indication: Product used for unknown indication
     Route: 065
     Dates: start: 20211119

REACTIONS (1)
  - Septic shock [Recovered/Resolved]

NARRATIVE: CASE EVENT DATE: 20211224
